FAERS Safety Report 9553578 (Version 1)
Quarter: 2013Q3

REPORT INFORMATION
  Report Type: Spontaneous
  Country: DK (occurrence: FR)
  Receive Date: 20130925
  Receipt Date: 20130925
  Transmission Date: 20140515
  Serious: Yes (Hospitalization)
  Sender: FDA-Public Use
  Company Number: FR-FRI-1000048968

PATIENT
  Age: 72 Year
  Sex: Female

DRUGS (7)
  1. ESCITALOPRAM [Suspect]
     Indication: DEPRESSION
     Route: 048
     Dates: end: 201305
  2. SOLIAN [Concomitant]
  3. METFORMINE [Concomitant]
  4. REPAGLINIDE [Concomitant]
  5. PARKINANE [Concomitant]
  6. BUSPIRONE HYDROCHLORIDE [Concomitant]
  7. CHONDROSULF [Concomitant]

REACTIONS (1)
  - Withdrawal syndrome [Recovered/Resolved]
